FAERS Safety Report 9398839 (Version 1)
Quarter: 2013Q3

REPORT INFORMATION
  Report Type: Spontaneous
  Country: US (occurrence: US)
  Receive Date: 20130712
  Receipt Date: 20130712
  Transmission Date: 20140515
  Serious: No
  Sender: FDA-Public Use
  Company Number: US-TEVA-418288USA

PATIENT
  Age: 68 Year
  Sex: Male
  Weight: 93.07 kg

DRUGS (1)
  1. PROAIR HFA [Suspect]
     Indication: BRONCHITIS
     Dosage: 2 PUFFS EVERY 4 HOURS
     Route: 055
     Dates: start: 20130525

REACTIONS (1)
  - Wheezing [Unknown]
